FAERS Safety Report 4704321-4 (Version None)
Quarter: 2005Q2

REPORT INFORMATION
  Report Type: 
  Country: None (occurrence: None)
  Receive Date: 20050629
  Receipt Date: 20050620
  Transmission Date: 20051028
  Serious: Yes (Hospitalization)
  Sender: FDA-Public Use
  Company Number: 214479

PATIENT
  Age: 45 Year
  Sex: Female
  Weight: 122.7 kg

DRUGS (5)
  1. RAPTIVA [Suspect]
     Indication: PSORIASIS
     Dosage: 1.2 MG/KG, 1/WEEK, SUBCUTANEOUS
     Route: 058
     Dates: start: 20050215, end: 20050422
  2. SINGULAIR [Concomitant]
  3. ADVAIR (FLUTICASONE PROPIONATE, SALMETEROL XINAFOATE) [Concomitant]
  4. ROBAXIN [Concomitant]
  5. ULTRAM [Concomitant]

REACTIONS (4)
  - ABDOMINAL PAIN [None]
  - ASTHENIA [None]
  - FATIGUE [None]
  - PYREXIA [None]
